FAERS Safety Report 9181761 (Version 1)
Quarter: 2013Q1

REPORT INFORMATION
  Report Type: Spontaneous
  Country: JP (occurrence: JP)
  Receive Date: 20130322
  Receipt Date: 20130322
  Transmission Date: 20140127
  Serious: Yes (Hospitalization)
  Sender: FDA-Public Use
  Company Number: JP-SANOFI-AVENTIS-2013SA023970

PATIENT
  Age: 45 Year
  Sex: Male

DRUGS (4)
  1. LANTUS [Suspect]
     Indication: DIABETES MELLITUS
     Route: 058
  2. SOLOSTAR [Suspect]
     Indication: DEVICE THERAPY
     Route: 065
  3. LANTUS [Suspect]
     Indication: DIABETES MELLITUS
     Dosage: DELIVERED BY OPTICLICK
     Route: 058
  4. OPTICLICK [Suspect]
     Indication: DEVICE THERAPY
     Route: 065

REACTIONS (4)
  - Acanthosis nigricans [Recovered/Resolved]
  - Skin lesion [Recovered/Resolved]
  - Hyperkeratosis [Recovered/Resolved]
  - Skin discolouration [Recovered/Resolved]
